FAERS Safety Report 12809280 (Version 2)
Quarter: 2016Q4

REPORT INFORMATION
  Report Type: Spontaneous
  Country: US (occurrence: US)
  Receive Date: 20161004
  Receipt Date: 20161024
  Transmission Date: 20170207
  Serious: No
  Sender: FDA-Public Use
  Company Number: US-ASTRAZENECA-2016SF05234

PATIENT
  Sex: Female

DRUGS (4)
  1. MOVANTIK [Suspect]
     Active Substance: NALOXEGOL OXALATE
     Indication: PRODUCT USED FOR UNKNOWN INDICATION
     Route: 048
     Dates: start: 20160930
  2. PAIN MEDICAITONS [Concomitant]
  3. MIRALAX [Concomitant]
     Active Substance: POLYETHYLENE GLYCOL 3350
  4. MOVANTIK [Suspect]
     Active Substance: NALOXEGOL OXALATE
     Indication: PRODUCT USED FOR UNKNOWN INDICATION
     Route: 048

REACTIONS (4)
  - Abdominal pain upper [Unknown]
  - Eructation [Unknown]
  - Drug dose omission [Unknown]
  - Drug ineffective [Unknown]
